FAERS Safety Report 23544422 (Version 1)
Quarter: 2024Q1

REPORT INFORMATION
  Report Type: Spontaneous
  Country: US (occurrence: None)
  Receive Date: 20240217
  Receipt Date: 20240217
  Transmission Date: 20240410
  Serious: Yes (Other)
  Sender: FDA-Public Use
  Company Number: None

PATIENT
  Age: 50 Year
  Sex: Male
  Weight: 108 kg

DRUGS (2)
  1. MOMETASONE FUROATE [Suspect]
     Active Substance: MOMETASONE FUROATE
     Indication: Rhinitis allergic
  2. ESCITALOPRAM [Concomitant]
     Active Substance: ESCITALOPRAM OXALATE

REACTIONS (8)
  - Anxiety [None]
  - Paranoia [None]
  - Abdominal pain [None]
  - Diarrhoea [None]
  - Insomnia [None]
  - Influenza like illness [None]
  - Irritable bowel syndrome [None]
  - Therapy cessation [None]

NARRATIVE: CASE EVENT DATE: 20240215
